FAERS Safety Report 4946901-7 (Version None)
Quarter: 2006Q1

REPORT INFORMATION
  Report Type: 
  Country: None (occurrence: None)
  Receive Date: 20060201
  Receipt Date: 20051208
  Transmission Date: 20060701
  Serious: No
  Sender: FDA-Public Use
  Company Number: 2005PV005638

PATIENT
  Age: 54 Year
  Sex: Female
  Weight: 70.7611 kg

DRUGS (5)
  1. BYETTA [Suspect]
     Indication: DIABETES MELLITUS NON-INSULIN-DEPENDENT
     Dosage: 10 MCG;BID;SC   5 MCG;BID;SC
     Route: 058
     Dates: start: 20051025, end: 20051124
  2. BYETTA [Suspect]
     Indication: DIABETES MELLITUS NON-INSULIN-DEPENDENT
     Dosage: 10 MCG;BID;SC   5 MCG;BID;SC
     Route: 058
     Dates: start: 20051125
  3. METFORMIN [Concomitant]
  4. PRILOSEC [Concomitant]
  5. SYNTHROID [Concomitant]

REACTIONS (3)
  - INJECTION SITE BRUISING [None]
  - INJECTION SITE HAEMORRHAGE [None]
  - INJECTION SITE IRRITATION [None]
